FAERS Safety Report 8848710 (Version 1)
Quarter: 2012Q4

REPORT INFORMATION
  Report Type: 
  Country: US (occurrence: US)
  Receive Date: 20121018
  Receipt Date: 20121018
  Transmission Date: 20130627
  Serious: Yes (Death)
  Sender: FDA-Public Use
  Company Number: US-ARROW-2012-17416

PATIENT
  Age: 76 Year
  Sex: Male
  Weight: 88 kg

DRUGS (13)
  1. RAPAFLO [Suspect]
     Indication: BENIGN PROSTATIC HYPERPLASIA
     Dosage: 8 mg, daily
     Route: 048
     Dates: start: 20120621, end: 20120729
  2. LOSARTAN POTASSIUM (WATSON LABORATORIES) [Suspect]
     Indication: PRODUCT USED FOR UNKNOWN INDICATION
     Dosage: 100 mg, Daily
     Route: 048
     Dates: start: 20120531
  3. PREDNISONE (WATSON LABORATORIES) [Suspect]
     Indication: PRODUCT USED FOR UNKNOWN INDICATION
     Dosage: 10 mg, daily
     Route: 048
     Dates: start: 20120531
  4. LOVASTATIN [Suspect]
     Dosage: 40 mg, 2 tablets daily
     Route: 048
     Dates: start: 20100831
  5. METFORMIN HYDROCHLORIDE (WATSON LABORATORIES) [Suspect]
     Indication: PRODUCT USED FOR UNKNOWN INDICATION
     Dosage: 1000 mg, bid
     Route: 048
     Dates: start: 20100831
  6. METOPROLOL [Suspect]
     Indication: PRODUCT USED FOR UNKNOWN INDICATION
     Dosage: 50 mg, bid
     Route: 048
     Dates: start: 20120221
  7. VENTOLIN                           /00139501/ [Suspect]
     Indication: PRODUCT USED FOR UNKNOWN INDICATION
     Dosage: 2 puffs every 4-6 hrs as needed
     Route: 055
     Dates: start: 20120531
  8. IMURAN                             /00001501/ [Suspect]
     Indication: PRODUCT USED FOR UNKNOWN INDICATION
     Dosage: 50 mg, daily
     Route: 048
     Dates: start: 20120531
  9. ADVAIR [Suspect]
     Indication: PRODUCT USED FOR UNKNOWN INDICATION
     Dosage: 500-50 mcg, 1 inhalation daily
     Route: 055
     Dates: start: 20120531
  10. ASPIRIN [Suspect]
     Indication: PRODUCT USED FOR UNKNOWN INDICATION
     Dosage: 325 mg, daily
     Route: 048
     Dates: start: 20120531
  11. HUMALOG [Suspect]
     Indication: PRODUCT USED FOR UNKNOWN INDICATION
     Dosage: 75/ 25 suspension, 35 u, bid
     Route: 058
     Dates: start: 20120621
  12. FINASTERIDE [Suspect]
     Indication: PRODUCT USED FOR UNKNOWN INDICATION
     Dosage: 5 mg, daily
     Route: 048
     Dates: start: 20120621
  13. XOPENEX [Suspect]
     Indication: PRODUCT USED FOR UNKNOWN INDICATION
     Dosage: 1.25 mg/ 3 ml,1 amp per Neb, 4 times/day
     Route: 055
     Dates: start: 20120705

REACTIONS (3)
  - Respiratory failure [Fatal]
  - Hypoxia [Fatal]
  - Cardiac arrest [Fatal]
